FAERS Safety Report 16780989 (Version 2)
Quarter: 2019Q4

REPORT INFORMATION
  Report Type: Spontaneous
  Country: US (occurrence: US)
  Receive Date: 20190906
  Receipt Date: 20191018
  Transmission Date: 20200122
  Serious: No
  Sender: FDA-Public Use
  Company Number: US-PFIZER INC-2019387760

PATIENT
  Age: 61 Year
  Sex: Female
  Weight: 79 kg

DRUGS (1)
  1. DETROL LA [Suspect]
     Active Substance: TOLTERODINE TARTRATE
     Indication: BLADDER DISORDER
     Dosage: UNK
     Dates: start: 2010

REACTIONS (3)
  - Urinary incontinence [Recovering/Resolving]
  - Insomnia [Recovering/Resolving]
  - Pollakiuria [Recovering/Resolving]
